FAERS Safety Report 12257770 (Version 1)
Quarter: 2016Q2

REPORT INFORMATION
  Report Type: Spontaneous
  Country: US (occurrence: US)
  Receive Date: 20160412
  Receipt Date: 20160412
  Transmission Date: 20160815
  Serious: Yes (Other)
  Sender: FDA-Public Use
  Company Number: US-SAGENTPRD-2016-US-000004

PATIENT
  Age: 54 Year
  Sex: Female
  Weight: 74.38 kg

DRUGS (1)
  1. HEPARIN SODIUM INJECTION, MDV, 1 ML 10,000 UNIT/ML [Suspect]
     Active Substance: HEPARIN SODIUM
     Dosage: 30,000 UNITS IN CELL SAVER DEV
     Dates: start: 20160302, end: 20160302

REACTIONS (1)
  - Drug ineffective [Unknown]

NARRATIVE: CASE EVENT DATE: 20160302
